FAERS Safety Report 17392481 (Version 1)
Quarter: 2020Q1

REPORT INFORMATION
  Report Type: Spontaneous
  Country: IT (occurrence: IT)
  Receive Date: 20200207
  Receipt Date: 20200207
  Transmission Date: 20200409
  Serious: Yes (Other)
  Sender: FDA-Public Use
  Company Number: NVSC2020IT029897

PATIENT
  Age: 64 Year
  Sex: Female

DRUGS (6)
  1. PAZOPANIB [Suspect]
     Active Substance: PAZOPANIB
     Indication: SOLITARY FIBROUS TUMOUR
     Dosage: UNK
     Route: 065
     Dates: start: 201607, end: 201808
  2. EPIRUBICIN [Suspect]
     Active Substance: EPIRUBICIN
     Indication: SOLITARY FIBROUS TUMOUR
     Dosage: UNK
     Route: 065
     Dates: start: 201607, end: 201808
  3. METHOTREXATE. [Suspect]
     Active Substance: METHOTREXATE
     Indication: SOLITARY FIBROUS TUMOUR
     Dosage: UNK
     Route: 065
     Dates: start: 201607, end: 201808
  4. IFOSFAMIDE. [Suspect]
     Active Substance: IFOSFAMIDE
     Indication: SOLITARY FIBROUS TUMOUR
     Dosage: UNK
     Route: 065
     Dates: start: 201607, end: 201808
  5. HYDROXYUREA. [Suspect]
     Active Substance: HYDROXYUREA
     Indication: SOLITARY FIBROUS TUMOUR
     Dosage: UNK
     Route: 065
     Dates: start: 201607, end: 201808
  6. TRABECTEDIN [Suspect]
     Active Substance: TRABECTEDIN
     Indication: SOLITARY FIBROUS TUMOUR
     Dosage: UNK
     Route: 065
     Dates: start: 201607, end: 201808

REACTIONS (3)
  - Malignant neoplasm progression [Unknown]
  - Product use in unapproved indication [Unknown]
  - Solitary fibrous tumour [Unknown]
